FAERS Safety Report 5159535-9 (Version None)
Quarter: 2006Q4

REPORT INFORMATION
  Report Type: 
  Country: None (occurrence: None)
  Receive Date: 20061120
  Receipt Date: 20061030
  Transmission Date: 20070319
  Serious: Yes (Hospitalization)
  Sender: FDA-Public Use
  Company Number: 2006SP005829

PATIENT
  Age: 51 Year
  Sex: Male

DRUGS (4)
  1. EPTIFIBATIDE (S-P) (EPTIFIBATIDE) [Suspect]
     Indication: CATHETERISATION CARDIAC
     Dosage: 14.6 ML
     Dates: start: 20061023, end: 20061023
  2. SODIUM CHLORIDE (CON) [Concomitant]
  3. IOPROMIDE (CON) [Concomitant]
  4. HEPARIN (CON) [Concomitant]

REACTIONS (4)
  - CHILLS [None]
  - POST PROCEDURAL COMPLICATION [None]
  - PYREXIA [None]
  - TREMOR [None]
